FAERS Safety Report 16106037 (Version 1)
Quarter: 2019Q1

REPORT INFORMATION
  Report Type: Spontaneous
  Country: FR (occurrence: FR)
  Receive Date: 20190322
  Receipt Date: 20190322
  Transmission Date: 20190418
  Serious: Yes (Hospitalization)
  Sender: FDA-Public Use
  Company Number: FR-SA-2019SA075508

PATIENT
  Age: 60 Year
  Sex: Male
  Weight: 78 kg

DRUGS (10)
  1. RABEPRAZOLE SODIUM. [Suspect]
     Active Substance: RABEPRAZOLE SODIUM
     Indication: ABDOMINAL PAIN
     Dosage: 220 MG, QD
     Dates: start: 20181120, end: 20181123
  2. DESLORATADINE. [Suspect]
     Active Substance: DESLORATADINE
     Indication: ABDOMINAL PAIN
     Dosage: 1 DF
     Route: 048
     Dates: start: 20181122, end: 20181123
  3. FORLAX [Suspect]
     Active Substance: POLYETHYLENE GLYCOL 4000
     Indication: CONSTIPATION
     Route: 048
     Dates: start: 20181120, end: 20181123
  4. PERMIXON [Suspect]
     Active Substance: HERBALS\SAW PALMETTO
     Indication: PROSTATIC ADENOMA
     Dosage: 2 DF, QD
     Route: 048
     Dates: start: 20181115, end: 20181121
  5. ESOMEPRAZOLE. [Suspect]
     Active Substance: ESOMEPRAZOLE MAGNESIUM
     Route: 048
     Dates: start: 20181113
  6. PHLOROGLUCINOL [Suspect]
     Active Substance: PHLOROGLUCINOL
     Indication: ABDOMINAL PAIN
     Route: 048
     Dates: start: 20181120, end: 20181123
  7. SULFAMETHOXAZOLE/TRIMETHOPRIM [Suspect]
     Active Substance: SULFAMETHOXAZOLE\TRIMETHOPRIM
     Indication: PROSTATITIS
     Dosage: 2 DF, QD
     Route: 048
     Dates: start: 20181115, end: 20181122
  8. GAVISCON [Suspect]
     Active Substance: ALUMINUM HYDROXIDE\MAGNESIUM CARBONATE
     Indication: ABDOMINAL PAIN
     Route: 048
     Dates: start: 20181120, end: 20181123
  9. MOPRAL [OMEPRAZOLE MAGNESIUM] [Suspect]
     Active Substance: OMEPRAZOLE MAGNESIUM
     Indication: ABDOMINAL PAIN
     Dosage: 20 MG, QD
     Route: 048
     Dates: start: 20181115, end: 20181119
  10. COLOPEG [Suspect]
     Active Substance: POLYETHYLENE GLYCOL 3350\POTASSIUM CHLORIDE\SODIUM BICARBONATE\SODIUM CHLORIDE\SODIUM SULFATE
     Indication: ABDOMINAL PAIN
     Route: 048
     Dates: start: 20181122

REACTIONS (1)
  - Rash maculo-papular [Recovered/Resolved]

NARRATIVE: CASE EVENT DATE: 20181123
